FAERS Safety Report 24991479 (Version 1)
Quarter: 2025Q1

REPORT INFORMATION
  Report Type: Spontaneous
  Country: US (occurrence: US)
  Receive Date: 20250220
  Receipt Date: 20250220
  Transmission Date: 20250408
  Serious: Yes (Hospitalization)
  Sender: DAIICHI
  Company Number: US-DSJP-DS-2025-123245-US

PATIENT
  Sex: Male

DRUGS (1)
  1. VANFLYTA [Suspect]
     Active Substance: QUIZARTINIB DIHYDROCHLORIDE
     Indication: Acute myeloid leukaemia
     Dosage: 35.4 MG, QD (ON DAYS 8-21 OF EVERY 28-DAY CYCLE)
     Route: 048
     Dates: start: 202501

REACTIONS (2)
  - Carditis [Not Recovered/Not Resolved]
  - Ear inflammation [Not Recovered/Not Resolved]
